FAERS Safety Report 22116718 (Version 1)
Quarter: 2023Q1

REPORT INFORMATION
  Report Type: Report from Study
  Country: NL (occurrence: NL)
  Receive Date: 20230320
  Receipt Date: 20230320
  Transmission Date: 20230418
  Serious: Yes (Hospitalization, Other)
  Sender: FDA-Public Use
  Company Number: NL-ABBVIE-4174538

PATIENT
  Sex: Male

DRUGS (7)
  1. AZACITIDINE [Suspect]
     Active Substance: AZACITIDINE
     Indication: Leukaemia
     Dosage: UNK,(DURATION 5 DAYS INSTEAD OF 7 DAYS)
     Route: 065
     Dates: start: 202109
  2. AZACITIDINE [Suspect]
     Active Substance: AZACITIDINE
     Dosage: UNK
     Route: 065
     Dates: start: 202204, end: 20220801
  3. VENETOCLAX [Suspect]
     Active Substance: VENETOCLAX
     Indication: Leukaemia
     Dosage: UNK,(DAY 1-14)
     Route: 048
     Dates: start: 20210920
  4. VENETOCLAX [Suspect]
     Active Substance: VENETOCLAX
     Dosage: 200 MILLIGRAM,(TO 14 DAYS)
     Route: 048
     Dates: start: 202111
  5. VENETOCLAX [Suspect]
     Active Substance: VENETOCLAX
     Dosage: UNK,(TO 21 DAYS)
     Route: 048
     Dates: start: 202202
  6. VENETOCLAX [Suspect]
     Active Substance: VENETOCLAX
     Dosage: 200 MILLIGRAM
     Route: 048
     Dates: start: 202204
  7. VENETOCLAX [Suspect]
     Active Substance: VENETOCLAX
     Dosage: 200 MILLIGRAM, QD
     Route: 048
     Dates: start: 2022, end: 20221003

REACTIONS (7)
  - Leukaemia [Not Recovered/Not Resolved]
  - Pneumonia [Recovered/Resolved]
  - Neutropenia [Unknown]
  - Cytopenia [Unknown]
  - Pancytopenia [Unknown]
  - Infection [Unknown]
  - Bone pain [Unknown]

NARRATIVE: CASE EVENT DATE: 20211101
